FAERS Safety Report 13697601 (Version 2)
Quarter: 2017Q3

REPORT INFORMATION
  Report Type: Spontaneous
  Country: FR (occurrence: FR)
  Receive Date: 20170628
  Receipt Date: 20170707
  Transmission Date: 20171127
  Serious: Yes (Other)
  Sender: FDA-Public Use
  Company Number: FR-PFIZER INC-2017271928

PATIENT
  Age: 65 Year
  Sex: Male

DRUGS (2)
  1. SUNITINIB MALATE. [Suspect]
     Active Substance: SUNITINIB MALATE
     Indication: RENAL NEOPLASM
     Dosage: UNK
     Dates: start: 201505
  2. SUNITINIB MALATE. [Suspect]
     Active Substance: SUNITINIB MALATE
     Dosage: UNK (SUNITINIB WAS RESTARTED, DUE TO THE PROGRESSION OF HEPATIC METASTASES)
     Dates: start: 201605

REACTIONS (2)
  - Right ventricular failure [Recovered/Resolved]
  - Pulmonary arterial hypertension [Recovered/Resolved]
